FAERS Safety Report 7764462-4 (Version None)
Quarter: 2011Q3

REPORT INFORMATION
  Report Type: 
  Country: None (occurrence: None)
  Receive Date: 20110921
  Receipt Date: 20110906
  Transmission Date: 20111222
  Serious: Yes (Hospitalization)
  Sender: FDA-Public Use
  Company Number: IL-SANOFI-AVENTIS-2011SA051814

PATIENT
  Age: 76 Year
  Sex: Male
  Weight: 99 kg

DRUGS (12)
  1. WARFARIN SODIUM [Concomitant]
  2. ATORVASTATIN [Concomitant]
  3. ASPIRIN [Concomitant]
  4. VENTOLIN [Concomitant]
  5. DRONEDARONE HCL [Suspect]
     Indication: ATRIAL FIBRILLATION
     Route: 048
     Dates: start: 20110420, end: 20110515
  6. AMLODIPINE [Concomitant]
  7. ENOXAPARIN SODIUM [Concomitant]
     Dates: end: 20110422
  8. METOPROLOL TARTRATE [Concomitant]
     Dates: start: 20110423, end: 20110424
  9. BROTIZOLAM [Concomitant]
  10. METOPROLOL TARTRATE [Concomitant]
     Dates: start: 20110424
  11. RAMIPRIL [Concomitant]
     Dates: end: 20110423
  12. OMEPRAZOLE [Concomitant]

REACTIONS (1)
  - CARDIAC FAILURE [None]
